FAERS Safety Report 24424285 (Version 2)
Quarter: 2024Q4

REPORT INFORMATION
  Report Type: Spontaneous
  Country: US (occurrence: US)
  Receive Date: 20241010
  Receipt Date: 20241025
  Transmission Date: 20250114
  Serious: Yes (Hospitalization)
  Sender: TEVA
  Company Number: US-TEVA-VS-3251531

PATIENT
  Sex: Male

DRUGS (11)
  1. CLOBAZAM [Suspect]
     Active Substance: CLOBAZAM
     Indication: Sleep related hypermotor epilepsy
     Route: 065
  2. CLOBAZAM [Suspect]
     Active Substance: CLOBAZAM
  3. LEVETIRACETAM [Suspect]
     Active Substance: LEVETIRACETAM
     Indication: Sleep related hypermotor epilepsy
     Route: 065
  4. PROPRANOLOL [Suspect]
     Active Substance: PROPRANOLOL HYDROCHLORIDE
     Indication: Anxiety
     Route: 065
  5. CENOBAMATE [Concomitant]
     Active Substance: CENOBAMATE
     Indication: Sleep related hypermotor epilepsy
     Route: 065
  6. LAMOTRIGINE [Suspect]
     Active Substance: LAMOTRIGINE
     Indication: Sleep related hypermotor epilepsy
     Route: 065
  7. OXCARBAZEPINE [Suspect]
     Active Substance: OXCARBAZEPINE
     Indication: Sleep related hypermotor epilepsy
     Route: 065
  8. TOPIRAMATE [Suspect]
     Active Substance: TOPIRAMATE
     Indication: Sleep related hypermotor epilepsy
     Route: 065
  9. CLONAZEPAM [Suspect]
     Active Substance: CLONAZEPAM
     Indication: Sleep related hypermotor epilepsy
     Route: 065
  10. NICOTINE [Suspect]
     Active Substance: NICOTINE
     Indication: Sleep related hypermotor epilepsy
     Route: 062
  11. GABAPENTIN [Suspect]
     Active Substance: GABAPENTIN
     Indication: Sleep related hypermotor epilepsy
     Route: 065

REACTIONS (6)
  - Drug ineffective [Unknown]
  - Treatment noncompliance [Unknown]
  - Anxiety [Recovering/Resolving]
  - Palpitations [Recovering/Resolving]
  - Intentional product misuse [Unknown]
  - Insomnia [Recovering/Resolving]
